FAERS Safety Report 5972553-3 (Version None)
Quarter: 2008Q4

REPORT INFORMATION
  Report Type: 
  Country: None (occurrence: None)
  Receive Date: 20081201
  Receipt Date: 20081124
  Transmission Date: 20090506
  Serious: Yes (Death)
  Sender: FDA-Public Use
  Company Number: B0547560A

PATIENT
  Age: 80 Year
  Sex: Male

DRUGS (3)
  1. AMOXICILLIN TRIHYDRATE [Suspect]
     Indication: ENDOCARDITIS
     Dosage: 2G SIX TIMES PER DAY
     Route: 042
     Dates: start: 20081021, end: 20081024
  2. SINTROM [Suspect]
     Indication: CARDIAC VALVE DISEASE
     Dosage: 3MG PER DAY
     Route: 048
     Dates: start: 20081001, end: 20081024
  3. GENTAMICIN [Concomitant]
     Indication: ENDOCARDITIS
     Dates: start: 20081007, end: 20081020

REACTIONS (6)
  - BRAIN HERNIATION [None]
  - CEREBRAL HAEMATOMA [None]
  - HEADACHE [None]
  - INTERNATIONAL NORMALISED RATIO INCREASED [None]
  - LOSS OF CONSCIOUSNESS [None]
  - SUBDURAL HAEMATOMA [None]
